FAERS Safety Report 18482945 (Version 1)
Quarter: 2020Q4

REPORT INFORMATION
  Report Type: Spontaneous
  Country: US (occurrence: US)
  Receive Date: 20201110
  Receipt Date: 20201110
  Transmission Date: 20210114
  Serious: Yes (Hospitalization, Other)
  Sender: FDA-Public Use
  Company Number: US-CIPLA LTD.-2020US07897

PATIENT

DRUGS (1)
  1. ISOPROTERENOL. [Suspect]
     Active Substance: ISOPROTERENOL
     Indication: TILT TABLE TEST
     Dosage: 1 ?G/MIN TO 3 AND 5 ?G/MIN (5 ?G/MIN  FOR 5 MIN)
     Route: 042

REACTIONS (5)
  - Bradycardia [Recovered/Resolved]
  - Vision blurred [Recovered/Resolved]
  - Electrocardiogram ST segment elevation [Recovered/Resolved]
  - Fatigue [Unknown]
  - Arteriospasm coronary [Recovered/Resolved]
